FAERS Safety Report 10409871 (Version 1)
Quarter: 2014Q3

REPORT INFORMATION
  Report Type: Spontaneous
  Country: US (occurrence: None)
  Receive Date: 20140822
  Receipt Date: 20140822
  Transmission Date: 20150326
  Serious: Yes (Other)
  Sender: FDA-Public Use
  Company Number: 2014COR00061

PATIENT
  Age: 47 Year
  Sex: Female

DRUGS (1)
  1. DOXYCYCLINE. [Suspect]
     Active Substance: DOXYCYCLINE
     Indication: LYME DISEASE
     Route: 048

REACTIONS (7)
  - Hypersensitivity [None]
  - Asthenia [None]
  - Flushing [None]
  - Jarisch-Herxheimer reaction [None]
  - Myalgia [None]
  - Gingival erythema [None]
  - Fatigue [None]
